FAERS Safety Report 16383547 (Version 1)
Quarter: 2019Q2

REPORT INFORMATION
  Report Type: Spontaneous
  Country: US (occurrence: US)
  Receive Date: 20190517
  Receipt Date: 20190517
  Transmission Date: 20190711
  Serious: No
  Sender: FDA-Public Use
  Company Number: None

PATIENT
  Age: 44 Year
  Sex: Female

DRUGS (19)
  1. DULOXETINE. [Concomitant]
     Active Substance: DULOXETINE
  2. GLATIRAMER [Suspect]
     Active Substance: GLATIRAMER
     Indication: MULTIPLE SCLEROSIS
     Dosage: ?          OTHER FREQUENCY:TIW;?
     Route: 058
     Dates: start: 20190215
  3. COPAXONE [Concomitant]
     Active Substance: GLATIRAMER ACETATE
  4. CYMBALTA [Concomitant]
     Active Substance: DULOXETINE HYDROCHLORIDE
  5. RITALIN [Concomitant]
     Active Substance: METHYLPHENIDATE HYDROCHLORIDE
  6. CARB/LEVO [Concomitant]
     Active Substance: CARBIDOPA\LEVODOPA
  7. CLONAZEPAM. [Concomitant]
     Active Substance: CLONAZEPAM
  8. DIAZEPAM. [Concomitant]
     Active Substance: DIAZEPAM
  9. METHYLPHENID [Concomitant]
     Active Substance: METHYLPHENIDATE
  10. GABAPENTIN. [Concomitant]
     Active Substance: GABAPENTIN
  11. NORCO [Concomitant]
     Active Substance: ACETAMINOPHEN\HYDROCODONE BITARTRATE
  12. HYDROCO/APAP [Concomitant]
     Active Substance: ACETAMINOPHEN\HYDROCODONE
  13. LINZESS [Concomitant]
     Active Substance: LINACLOTIDE
  14. FENTANYL. [Concomitant]
     Active Substance: FENTANYL
  15. HYDROMORPHON [Concomitant]
     Active Substance: HYDROMORPHONE
  16. VITAMIN D [Concomitant]
     Active Substance: VITAMIN D NOS
  17. AMITRIPTYLIN [Concomitant]
     Active Substance: AMITRIPTYLINE
  18. BACLOFEN. [Concomitant]
     Active Substance: BACLOFEN
  19. VERAPAMIL [Concomitant]
     Active Substance: VERAPAMIL HYDROCHLORIDE

REACTIONS (1)
  - Hospitalisation [None]
